FAERS Safety Report 19675044 (Version 2)
Quarter: 2022Q1

REPORT INFORMATION
  Report Type: Spontaneous
  Country: US (occurrence: None)
  Receive Date: 20210809
  Receipt Date: 20220209
  Transmission Date: 20220423
  Serious: No
  Sender: FDA-Public Use
  Company Number: US-ROCHE-2746947

PATIENT
  Sex: Male
  Weight: 66.738 kg

DRUGS (7)
  1. ROZLYTREK [Suspect]
     Active Substance: ENTRECTINIB
     Indication: Metastases to central nervous system
     Dosage: 2 CAPSULES BY MOUTH
     Route: 048
     Dates: start: 20190705
  2. ROZLYTREK [Suspect]
     Active Substance: ENTRECTINIB
     Dosage: 2 CAPSULES BY MOUTH
     Route: 048
     Dates: start: 20201111
  3. ALBUTEROL SULFATE [Concomitant]
     Active Substance: ALBUTEROL SULFATE
     Dates: start: 20201202
  4. LEVOTHYROXINE [Concomitant]
     Active Substance: LEVOTHYROXINE
     Route: 048
     Dates: start: 20200824
  5. PIOGLITAZONE [Concomitant]
     Active Substance: PIOGLITAZONE
     Route: 048
     Dates: start: 20201202
  6. ZOLPIDEM [Concomitant]
     Active Substance: ZOLPIDEM TARTRATE
     Route: 048
     Dates: start: 20190703, end: 20190708
  7. FOLIC ACID [Concomitant]
     Active Substance: FOLIC ACID
     Route: 048
     Dates: start: 20190708

REACTIONS (3)
  - Product dose omission issue [Unknown]
  - Insomnia [Unknown]
  - Off label use [Unknown]
